FAERS Safety Report 6435055-6 (Version None)
Quarter: 2009Q4

REPORT INFORMATION
  Report Type: 
  Country: None (occurrence: None)
  Receive Date: 20091110
  Receipt Date: 20091106
  Transmission Date: 20100525
  Serious: Yes (Death, Other)
  Sender: FDA-Public Use
  Company Number: PHHY2009GB00812

PATIENT
  Sex: Female

DRUGS (7)
  1. CLOZARIL [Suspect]
     Indication: SCHIZOPHRENIA
     Dosage: 375 MG, QD
     Route: 048
     Dates: start: 20021008
  2. CLOZARIL [Suspect]
     Indication: PSYCHOTIC DISORDER
  3. MICRONOR [Concomitant]
     Dosage: 1 DF, QD
  4. MORPHINE [Concomitant]
     Dosage: 40 MG DAILY
  5. LACTULOSE [Concomitant]
     Dosage: 10 ML, DAILY
  6. ZOPICLONE [Concomitant]
     Indication: INSOMNIA
     Dosage: PRN 15 MG DAILY
     Route: 048
  7. DIAZEPAM [Concomitant]
     Indication: ANXIETY
     Dosage: PRN 20 MG DAILY

REACTIONS (2)
  - NEOPLASM MALIGNANT [None]
  - PLATELET COUNT INCREASED [None]
